FAERS Safety Report 5131028-4 (Version None)
Quarter: 2006Q4

REPORT INFORMATION
  Report Type: 
  Country: None (occurrence: None)
  Receive Date: 20061019
  Receipt Date: 20040923
  Transmission Date: 20070319
  Serious: Yes (Hospitalization, Other)
  Sender: FDA-Public Use
  Company Number: CA-BOEHRINGER INGELHEIM PHARMACEUTICALS, INC.-2004-CN-00344CN

PATIENT
  Sex: Female
  Weight: 55.5 kg

DRUGS (4)
  1. TIPRANAVIR + RITONAVIR CO-ADMIN [Suspect]
     Indication: HIV INFECTION
     Dosage: TPV 290MG/M2 AND RTV 115MG/M2 BID
     Route: 048
     Dates: start: 20040310, end: 20040923
  2. ABACAVIR [Concomitant]
     Indication: HIV INFECTION
     Route: 048
     Dates: start: 20040310, end: 20040923
  3. LAMIVUDINE [Concomitant]
     Indication: HIV INFECTION
     Route: 048
     Dates: start: 20040310, end: 20040923
  4. SEPTRA [Concomitant]
     Indication: PROPHYLAXIS
     Route: 048
     Dates: start: 20040407, end: 20040922

REACTIONS (3)
  - HALLUCINATIONS, MIXED [None]
  - NIGHTMARE [None]
  - PSYCHIATRIC INVESTIGATION [None]
